FAERS Safety Report 11202089 (Version 1)
Quarter: 2015Q2

REPORT INFORMATION
  Report Type: Spontaneous
  Country: US (occurrence: US)
  Receive Date: 20150619
  Receipt Date: 20150619
  Transmission Date: 20150821
  Serious: Yes (Other)
  Sender: FDA-Public Use
  Company Number: US-ACTAVIS-2015-11770

PATIENT
  Age: 65 Year
  Sex: Male

DRUGS (5)
  1. ELOXATIN [Suspect]
     Active Substance: OXALIPLATIN
     Indication: ADENOCARCINOMA PANCREAS
     Dosage: 85 MG/M2 OVER 120MIN IN DAY 1, CYCLICAL
     Route: 065
  2. IRINOTECAN HYDROCHLORIDE (ATLLC) [Suspect]
     Active Substance: IRINOTECAN HYDROCHLORIDE
     Indication: ADENOCARCINOMA PANCREAS
     Dosage: 180 MG/M2 OVER 120MIN ON DAY1, CYCLICAL
     Route: 065
  3. LEUCOVORIN                         /00566701/ [Concomitant]
     Active Substance: LEUCOVORIN
     Indication: ADENOCARCINOMA PANCREAS
     Dosage: 400 MG/M2 ON DAY 1, CYCLICAL
     Route: 040
  4. FLUOROURACIL 5 FU [Concomitant]
     Active Substance: FLUOROURACIL
     Dosage: 2400 MG/M2 OVER 46H, CYCLICAL
     Route: 041
  5. FLUOROURACIL 5 FU [Concomitant]
     Active Substance: FLUOROURACIL
     Indication: ADENOCARCINOMA PANCREAS
     Dosage: 400 MG/M2 ON DAY 1, CYCLICAL
     Route: 040

REACTIONS (4)
  - Peripheral sensory neuropathy [Unknown]
  - Dysarthria [Recovered/Resolved]
  - Muscle contractions involuntary [Unknown]
  - Lhermitte^s sign [Unknown]
